FAERS Safety Report 25915480 (Version 2)
Quarter: 2025Q4

REPORT INFORMATION
  Report Type: Spontaneous
  Country: EU (occurrence: EU)
  Receive Date: 20251013
  Receipt Date: 20251030
  Transmission Date: 20260117
  Serious: Yes (Hospitalization, Other)
  Sender: NOVARTIS
  Company Number: EU-002147023-NVSC2025PT154324

PATIENT
  Sex: Male

DRUGS (8)
  1. EVEROLIMUS [Suspect]
     Active Substance: EVEROLIMUS
     Indication: Tuberous sclerosis complex
     Dosage: (0.1 MG/KG/DAY) BIWEEKLY ADMINISTRATION
     Route: 065
  2. EVEROLIMUS [Suspect]
     Active Substance: EVEROLIMUS
     Indication: Rhabdomyoma
     Dosage: UNK
     Route: 065
  3. EVEROLIMUS [Suspect]
     Active Substance: EVEROLIMUS
     Indication: Benign cardiac neoplasm
  4. VIGABATRIN [Concomitant]
     Active Substance: VIGABATRIN
     Indication: Seizure prophylaxis
     Dosage: 100 MG/KG, QD
     Route: 065
  5. ADENOSINE [Concomitant]
     Active Substance: ADENOSINE
     Indication: Supraventricular tachycardia
     Dosage: UNK
     Route: 065
  6. PROPRANOLOL [Concomitant]
     Active Substance: PROPRANOLOL HYDROCHLORIDE
     Indication: Arrhythmia neonatal
     Dosage: 1 MG/KG, QD
     Route: 065
  7. FLECAINIDE [Concomitant]
     Active Substance: FLECAINIDE
     Indication: Arrhythmia neonatal
     Dosage: 2 MG/KG, QD
     Route: 065
  8. FLECAINIDE [Concomitant]
     Active Substance: FLECAINIDE
     Dosage: UNK ( INITIALLY DOSE ADJUSTED AND LATER STOPPED)
     Route: 065

REACTIONS (3)
  - Febrile infection [Unknown]
  - Urinary tract infection [Unknown]
  - Blood triglycerides increased [Recovering/Resolving]
